FAERS Safety Report 5045788-4 (Version None)
Quarter: 2006Q2

REPORT INFORMATION
  Report Type: 
  Country: None (occurrence: None)
  Receive Date: 20060601
  Receipt Date: 20060207
  Transmission Date: 20061013
  Serious: No
  Sender: FDA-Public Use
  Company Number: 2005-BP-01205BP(2)

PATIENT
  Age: 75 Year
  Sex: Male

DRUGS (8)
  1. SPIRIVA [Suspect]
     Indication: CHRONIC OBSTRUCTIVE PULMONARY DISEASE
     Dosage: PRN (18 MCG, 1 CAP QD PRN), IH
     Route: 055
     Dates: start: 20040501
  2. SPIRIVA [Suspect]
     Indication: EMPHYSEMA
     Dosage: PRN (18 MCG, 1 CAP QD PRN), IH
     Route: 055
     Dates: start: 20040501
  3. SPIRIVA [Suspect]
  4. ALBUTEROL [Concomitant]
  5. CARTIA (DILTIAZEM HYDROCHLORIDE) [Concomitant]
  6. COUMADIN [Concomitant]
  7. HYDROCHLOROTHIAZIDE [Concomitant]
  8. COZAAR [Concomitant]

REACTIONS (1)
  - DRUG INEFFECTIVE [None]
